FAERS Safety Report 16237755 (Version 1)
Quarter: 2019Q2

REPORT INFORMATION
  Report Type: Spontaneous
  Country: US (occurrence: US)
  Receive Date: 20190422
  Receipt Date: 20190422
  Transmission Date: 20190711
  Serious: Yes (Other)
  Sender: FDA-Public Use
  Company Number: None

PATIENT
  Age: 20 Year
  Sex: Female
  Weight: 50.6 kg

DRUGS (2)
  1. ANTICOAGULANT CITRATE DEXTROSE A ACD-A [Suspect]
     Active Substance: CITRIC ACID MONOHYDRATE\DEXTROSE MONOHYDRATE\SODIUM CITRATE
     Indication: ANTICOAGULANT THERAPY
     Dosage: ?          OTHER FREQUENCY:ONCE;OTHER ROUTE:EXTRACORPOREAL?
     Dates: start: 20190410, end: 20190410
  2. GCS-F (ZARXIO) [Concomitant]
     Dates: start: 20190405, end: 20190409

REACTIONS (9)
  - Chest pain [None]
  - Tachycardia [None]
  - Hypoxia [None]
  - Hyperhidrosis [None]
  - Muscle spasms [None]
  - Post procedural complication [None]
  - Hypoaesthesia [None]
  - Paraesthesia [None]
  - Extracorporeal circulation [None]

NARRATIVE: CASE EVENT DATE: 20190410
